FAERS Safety Report 5806485-8 (Version None)
Quarter: 2008Q3

REPORT INFORMATION
  Report Type: 
  Country: None (occurrence: None)
  Receive Date: 20080710
  Receipt Date: 20070926
  Transmission Date: 20090109
  Serious: No
  Sender: FDA-Public Use
  Company Number: US-BAYER-US-2007-036479

PATIENT
  Age: 68 Year
  Sex: Female
  Weight: 61 kg

DRUGS (12)
  1. CAMPATH [Suspect]
     Indication: CHRONIC LYMPHOCYTIC LEUKAEMIA
     Route: 058
     Dates: start: 20070320, end: 20070320
  2. CAMPATH [Suspect]
     Route: 058
     Dates: start: 20070301, end: 20070401
  3. CAMPATH [Suspect]
     Route: 058
     Dates: start: 20070423, end: 20070423
  4. ATARAX [Concomitant]
  5. FOLIC ACID [Concomitant]
  6. COUMADIN [Concomitant]
     Indication: THROMBOSIS
     Dates: start: 20030101
  7. MUCINEX [Concomitant]
  8. HYDROCODONE [Concomitant]
  9. VITAMIN B COMPLEX CAP [Concomitant]
  10. PREDNISOLONE [Concomitant]
     Dosage: UNIT DOSE: 10 MG
  11. TAGAMET [Concomitant]
     Indication: PREMEDICATION
     Dates: start: 20070320, end: 20070423
  12. BENADRYL ^WARNER-LAMBERT^ /USA/ [Concomitant]
     Indication: PREMEDICATION
     Dates: start: 20070320, end: 20070423

REACTIONS (1)
  - HYPOTENSION [None]
